FAERS Safety Report 5966297-1 (Version None)
Quarter: 2008Q4

REPORT INFORMATION
  Report Type: 
  Country: None (occurrence: None)
  Receive Date: 20081119
  Receipt Date: 20080915
  Transmission Date: 20090506
  Serious: No
  Sender: FDA-Public Use
  Company Number: WAES 0809USA02096

PATIENT
  Age: 67 Year
  Sex: Male

DRUGS (5)
  1. JANUVIA [Suspect]
     Indication: DIABETES MELLITUS
     Dosage: 50 MG/DAILY/PO
     Route: 048
     Dates: start: 20080801
  2. GLIPIZIDE [Suspect]
  3. LISINOPRIL [Concomitant]
  4. SIMVASTATIN [Concomitant]
  5. TERAZOSIN HYDROCHLORIDE [Concomitant]

REACTIONS (1)
  - BLOOD GLUCOSE DECREASED [None]
